FAERS Safety Report 8156225 (Version 3)
Quarter: 2013Q1

REPORT INFORMATION
  Report Type: Spontaneous
  Country: FR (occurrence: None)
  Receive Date: 20110914
  Receipt Date: 20121221
  Transmission Date: 20140127
  Serious: Yes (Hospitalization)
  Sender: FDA-Public Use
  Company Number: 1036793

PATIENT
  Age: 11 Year
  Sex: Female

DRUGS (13)
  1. VINCRISTINE SULFATE [Suspect]
     Indication: T-CELL TYPE ACUTE LEUKAEMIA
  2. PIPERACILLIN AND TAZOBACTAM [Suspect]
     Indication: FEBRILE NEUTROPENIA
  3. PREDNISONE [Concomitant]
  4. (DAUNORUBICINE) [Concomitant]
  5. (CYCLOPHOSPHAMIDE) [Concomitant]
  6. L-ASPARAGINASE [Concomitant]
  7. (OMEPRAZOLE) [Concomitant]
  8. (HYDROXYZINE) [Concomitant]
  9. (AMITRIPTYLINE) [Concomitant]
  10. (NALBUPHINE) [Concomitant]
  11. (GABAPENTIN) [Concomitant]
  12. (PHENOBARBITAL) [Concomitant]
  13. (ANTIEMETICS AND ANTINAUSEANTS) [Concomitant]

REACTIONS (5)
  - Drug interaction [None]
  - Autonomic neuropathy [None]
  - Cholestasis [None]
  - Ileus paralytic [None]
  - Neurotoxicity [None]
